FAERS Safety Report 5518411-X (Version None)
Quarter: 2007Q4

REPORT INFORMATION
  Report Type: 
  Country: None (occurrence: None)
  Receive Date: 20071113
  Receipt Date: 20071031
  Transmission Date: 20080405
  Serious: Yes (Hospitalization)
  Sender: FDA-Public Use
  Company Number: GXKR2007DE09431

PATIENT
  Age: 76 Year
  Sex: Male

DRUGS (5)
  1. METOPROLOL [Suspect]
     Indication: HYPERTENSION
     Dosage: 100 MG, BID, ORAL
     Route: 048
  2. OLMESARTAN MEDOXOMIL [Concomitant]
  3. INDAPAMIDE [Concomitant]
  4. GODAMED                      (ACETYLSALICYLIC ACID, AMINOACETIC ACID) [Concomitant]
  5. AMLODIPINE [Concomitant]

REACTIONS (9)
  - ANXIETY [None]
  - ASTHENIA [None]
  - ASTHENOPIA [None]
  - BALANCE DISORDER [None]
  - DEPRESSION [None]
  - HEADACHE [None]
  - ILL-DEFINED DISORDER [None]
  - LISTLESS [None]
  - VERTIGO [None]
